FAERS Safety Report 25241193 (Version 1)
Quarter: 2025Q2

REPORT INFORMATION
  Report Type: Spontaneous
  Country: ET (occurrence: ET)
  Receive Date: 20250425
  Receipt Date: 20250425
  Transmission Date: 20250717
  Serious: Yes (Other)
  Sender: NOVARTIS
  Company Number: ET-002147023-NVSC2025ET068188

PATIENT
  Sex: Male

DRUGS (1)
  1. GLIVEC [Suspect]
     Active Substance: IMATINIB MESYLATE
     Indication: Chronic myeloid leukaemia
     Route: 065

REACTIONS (6)
  - Hyperleukocytosis [Unknown]
  - Spleen atrophy [Unknown]
  - Drug ineffective [Unknown]
  - Cytogenetic analysis abnormal [Unknown]
  - Haemoglobin decreased [Unknown]
  - Thrombocytosis [Unknown]
